FAERS Safety Report 9665234 (Version 2)
Quarter: 2013Q4

REPORT INFORMATION
  Report Type: Spontaneous
  Country: FR (occurrence: FR)
  Receive Date: 20131101
  Receipt Date: 20131101
  Transmission Date: 20140711
  Serious: Yes (Life-Threatening, Hospitalization, Other)
  Sender: FDA-Public Use
  Company Number: PHHY2013FR075107

PATIENT
  Age: 59 Year
  Sex: Female

DRUGS (7)
  1. EUCREAS [Suspect]
     Indication: TYPE 2 DIABETES MELLITUS
     Dosage: BID
     Route: 048
     Dates: start: 20130621, end: 20130625
  2. METFORMIN [Suspect]
     Indication: TYPE 2 DIABETES MELLITUS
     Dosage: TID
     Route: 048
     Dates: end: 20130621
  3. NOVONORM [Concomitant]
     Dosage: UNK UKN, UNK
  4. REPAGLINIDE [Concomitant]
     Dosage: 3 MG, QD
     Route: 048
     Dates: start: 20130621
  5. UVEDOSE [Concomitant]
     Dosage: 100000 IU, EVERY 2 WEEKS
     Route: 048
     Dates: start: 20130621
  6. VALSARTAN [Concomitant]
     Dosage: 80 MG, QD
     Route: 048
  7. LERCAN [Concomitant]
     Dosage: 20 MG, QD
     Route: 048

REACTIONS (5)
  - Hyperkalaemia [Recovered/Resolved]
  - Renal failure acute [Recovered/Resolved]
  - Malaise [Recovered/Resolved]
  - Pancreatitis acute [Recovered/Resolved]
  - Ischaemia [Recovered/Resolved]
